FAERS Safety Report 24229758 (Version 1)
Quarter: 2024Q3

REPORT INFORMATION
  Report Type: Spontaneous
  Country: CN (occurrence: CN)
  Receive Date: 20240820
  Receipt Date: 20240820
  Transmission Date: 20241017
  Serious: Yes (Other)
  Sender: BAUSCH AND LOMB
  Company Number: CN-BAUSCH-BL-2024-012202

PATIENT
  Age: 48 Year
  Sex: Male

DRUGS (14)
  1. DEXAMETHASONE [Suspect]
     Active Substance: DEXAMETHASONE
     Indication: Dizziness
     Route: 042
     Dates: start: 20220812
  2. DEXAMETHASONE [Suspect]
     Active Substance: DEXAMETHASONE
     Indication: Nausea
  3. DEXAMETHASONE [Suspect]
     Active Substance: DEXAMETHASONE
     Indication: Vomiting
  4. MOXIFLOXACIN [Suspect]
     Active Substance: MOXIFLOXACIN
     Indication: Listeriosis
     Route: 042
     Dates: start: 20220914, end: 20221011
  5. MOXIFLOXACIN [Suspect]
     Active Substance: MOXIFLOXACIN
     Indication: Encephalitis bacterial
     Route: 042
     Dates: start: 2022
  6. ACYCLOVIR [Concomitant]
     Active Substance: ACYCLOVIR
     Indication: Dizziness
     Route: 042
     Dates: start: 20220812
  7. ACYCLOVIR [Concomitant]
     Active Substance: ACYCLOVIR
     Indication: Nausea
  8. ACYCLOVIR [Concomitant]
     Active Substance: ACYCLOVIR
     Indication: Vomiting
  9. MEROPENEM [Concomitant]
     Active Substance: MEROPENEM
     Indication: Listeriosis
     Route: 042
     Dates: start: 20220914, end: 20221011
  10. MEROPENEM [Concomitant]
     Active Substance: MEROPENEM
     Indication: Encephalitis bacterial
  11. AMPICILLIN [Concomitant]
     Active Substance: AMPICILLIN
     Indication: Listeriosis
  12. AMPICILLIN [Concomitant]
     Active Substance: AMPICILLIN
     Indication: Encephalitis bacterial
     Dosage: .
     Route: 042
     Dates: start: 20221011, end: 2022
  13. AMPICILLIN [Concomitant]
     Active Substance: AMPICILLIN
     Dosage: .
     Route: 042
     Dates: start: 2022
  14. IBUPROFEN [Concomitant]
     Active Substance: IBUPROFEN
     Indication: COVID-19
     Dates: start: 2022

REACTIONS (3)
  - Muscle disorder [Recovering/Resolving]
  - Drug interaction [Recovering/Resolving]
  - CSF pressure decreased [Recovering/Resolving]

NARRATIVE: CASE EVENT DATE: 20230913
